FAERS Safety Report 15744205 (Version 1)
Quarter: 2018Q4

REPORT INFORMATION
  Report Type: Spontaneous
  Country: US (occurrence: US)
  Receive Date: 20181220
  Receipt Date: 20181220
  Transmission Date: 20190205
  Serious: Yes (Other)
  Sender: FDA-Public Use
  Company Number: US-ROCHE-2227526

PATIENT
  Sex: Female
  Weight: 65.8 kg

DRUGS (10)
  1. NASONEX [Concomitant]
     Active Substance: MOMETASONE FUROATE
     Dosage: 2 SPRAYS DAILY
     Route: 065
  2. AVAPRO [Concomitant]
     Active Substance: IRBESARTAN
     Dosage: TAKE 1 TABLET (300 MG) BY MOUTH EVERY NIGHT AT BEDTIME
     Route: 048
  3. CYANOCOBALAMIN. [Concomitant]
     Active Substance: CYANOCOBALAMIN
     Dosage: TAKE 1,000 MCG BY MOUTH DAILY
     Route: 048
  4. VITAMIN D3 [Concomitant]
     Active Substance: CHOLECALCIFEROL
     Dosage: TAKE 1,000 UNITS BY MOUTH DAILY
     Route: 048
  5. OCREVUS [Suspect]
     Active Substance: OCRELIZUMAB
     Indication: MULTIPLE SCLEROSIS
     Dosage: 300MG/10ML SOLUTION
     Route: 042
     Dates: start: 20171115
  6. OCREVUS [Suspect]
     Active Substance: OCRELIZUMAB
     Dosage: 300MG/10ML SOLUTION
     Route: 042
     Dates: start: 20171129
  7. LIORESAL [Concomitant]
     Active Substance: BACLOFEN
     Dosage: PATIENT TAKING DIFFERENTLY: TAKE 20MG BY MOUTH 2 TIMES A DAY
     Route: 048
  8. KENALOG [Concomitant]
     Active Substance: TRIAMCINOLONE ACETONIDE
     Dosage: APPLY TO AFFECTED AREA TWICE A DAY FOR 1-2 WEEKS.
     Route: 061
  9. ATIVAN [Concomitant]
     Active Substance: LORAZEPAM
     Dosage: TAKE 1 TABLET BY MOUTH EVERY NIGHT AT BEDTIME
     Route: 048
  10. OCREVUS [Suspect]
     Active Substance: OCRELIZUMAB
     Dosage: 300MG/10ML SOLUTION
     Route: 042
     Dates: start: 20180516

REACTIONS (1)
  - Breast cancer recurrent [Not Recovered/Not Resolved]
